FAERS Safety Report 9525603 (Version 1)
Quarter: 2013Q3

REPORT INFORMATION
  Report Type: Report from Study
  Country: FR (occurrence: FR)
  Receive Date: 20130915
  Receipt Date: 20130915
  Transmission Date: 20140515
  Serious: No
  Sender: FDA-Public Use
  Company Number: PHHY2013FR099899

PATIENT
  Sex: Male

DRUGS (3)
  1. STI571 [Suspect]
     Dosage: UNK UKN, UNK
     Dates: start: 20041022
  2. TASIGNA [Suspect]
     Dosage: 800 MG, UNK
  3. SPRYCEL//DASATINIB [Suspect]
     Dosage: 100 MG, UNK

REACTIONS (5)
  - Affective disorder [Unknown]
  - Depression [Unknown]
  - Headache [Unknown]
  - Asthenia [Unknown]
  - Decreased appetite [Unknown]
